FAERS Safety Report 20214020 (Version 1)
Quarter: 2021Q4

REPORT INFORMATION
  Report Type: Report from Study
  Country: KR (occurrence: KR)
  Receive Date: 20211221
  Receipt Date: 20211221
  Transmission Date: 20220303
  Serious: Yes (Death, Other)
  Sender: FDA-Public Use
  Company Number: KR-PFIZER INC-202101797440

PATIENT

DRUGS (1)
  1. PACLITAXEL [Suspect]
     Active Substance: PACLITAXEL
     Indication: Adenocarcinoma
     Dosage: 80 MG/M2, CYCLIC; (ON DAYS 1, 8, AND 15 OF EACH 4 WEEK CYCLE)
     Route: 042

REACTIONS (1)
  - Pneumonia [Fatal]
